FAERS Safety Report 18640254 (Version 1)
Quarter: 2020Q4

REPORT INFORMATION
  Report Type: Spontaneous
  Country: AU (occurrence: AU)
  Receive Date: 20201220
  Receipt Date: 20201220
  Transmission Date: 20210114
  Serious: Yes (Hospitalization)
  Sender: FDA-Public Use
  Company Number: AU-AMGEN-AUSSP2020204883

PATIENT
  Age: 82 Year
  Sex: Female

DRUGS (9)
  1. VITAMIN D [COLECALCIFEROL] [Concomitant]
     Active Substance: CHOLECALCIFEROL
  2. ESCITALOPRAM [Concomitant]
     Active Substance: ESCITALOPRAM OXALATE
  3. CALCIUM [Concomitant]
     Active Substance: CALCIUM
  4. PROLIA [Suspect]
     Active Substance: DENOSUMAB
     Indication: OSTEOPOROSIS
     Dosage: UNK UNK, Q6MO
     Route: 058
     Dates: start: 20201208
  5. HYDROXYUREA. [Concomitant]
     Active Substance: HYDROXYUREA
  6. ENALAPRIL [Concomitant]
     Active Substance: ENALAPRIL
  7. FRUSEMIDE [FUROSEMIDE] [Concomitant]
     Active Substance: FUROSEMIDE
  8. ASPIRIN [ACETYLSALICYLIC ACID] [Concomitant]
     Active Substance: ASPIRIN
  9. NEBIVOLOL. [Concomitant]
     Active Substance: NEBIVOLOL

REACTIONS (5)
  - Fatigue [Not Recovered/Not Resolved]
  - Hypocalcaemia [Not Recovered/Not Resolved]
  - Retching [Not Recovered/Not Resolved]
  - Abdominal pain upper [Not Recovered/Not Resolved]
  - Abdominal distension [Not Recovered/Not Resolved]

NARRATIVE: CASE EVENT DATE: 202012
